FAERS Safety Report 5697810-X (Version None)
Quarter: 2008Q2

REPORT INFORMATION
  Report Type: 
  Country: None (occurrence: None)
  Receive Date: 20080408
  Receipt Date: 20080403
  Transmission Date: 20081010
  Serious: Yes (Hospitalization)
  Sender: FDA-Public Use
  Company Number: CH-BRISTOL-MYERS SQUIBB COMPANY-14139406

PATIENT
  Age: 86 Year
  Sex: Female
  Weight: 48 kg

DRUGS (4)
  1. COAPROVEL [Suspect]
     Indication: ESSENTIAL HYPERTENSION
     Route: 048
     Dates: start: 20080201, end: 20080305
  2. DIOVAN HCT [Suspect]
     Indication: ESSENTIAL HYPERTENSION
     Route: 048
     Dates: start: 20080305, end: 20080307
  3. ASPIRIN [Concomitant]
     Route: 048
  4. BISOPROLOL FUMARATE [Concomitant]
     Indication: ESSENTIAL HYPERTENSION
     Route: 048

REACTIONS (1)
  - INAPPROPRIATE ANTIDIURETIC HORMONE SECRETION [None]
